FAERS Safety Report 19487129 (Version 1)
Quarter: 2021Q3

REPORT INFORMATION
  Report Type: Spontaneous
  Country: US (occurrence: US)
  Receive Date: 20210702
  Receipt Date: 20210702
  Transmission Date: 20211014
  Serious: Yes (Hospitalization)
  Sender: FDA-Public Use
  Company Number: US-MYLANLABS-2021M1038678

PATIENT
  Age: 16 Year
  Sex: Female

DRUGS (8)
  1. CHLORPROMAZINE. [Suspect]
     Active Substance: CHLORPROMAZINE
     Indication: CATATONIA
     Dosage: UNKNOWN STARTING DOSE
     Route: 065
  2. CHLORPROMAZINE. [Suspect]
     Active Substance: CHLORPROMAZINE
     Indication: BIPOLAR DISORDER
     Dosage: 150 MILLIGRAM, BID TITRATED UP TO 150 MG TWICE DAILY
     Route: 065
  3. LORAZEPAM. [Concomitant]
     Active Substance: LORAZEPAM
     Dosage: 2.5 MILLIGRAM, Q6H DOSE WAS INCREASED TO A MAXIMUM OF 2.5 MG EVERY 6 HOURS
     Route: 048
  4. LITHIUM. [Suspect]
     Active Substance: LITHIUM
     Indication: CATATONIA
     Dosage: UNK
     Route: 065
  5. ARIPIPRAZOLE. [Suspect]
     Active Substance: ARIPIPRAZOLE
     Indication: CATATONIA
     Dosage: UNK
     Route: 065
  6. LITHIUM. [Suspect]
     Active Substance: LITHIUM
     Indication: BIPOLAR DISORDER
  7. ARIPIPRAZOLE. [Suspect]
     Active Substance: ARIPIPRAZOLE
     Indication: BIPOLAR DISORDER
  8. LORAZEPAM. [Concomitant]
     Active Substance: LORAZEPAM
     Indication: CATATONIA
     Dosage: UNKNOWN STARTING DOSE
     Route: 048

REACTIONS (1)
  - Treatment failure [Unknown]
